FAERS Safety Report 4667716-3 (Version None)
Quarter: 2005Q2

REPORT INFORMATION
  Report Type: 
  Country: None (occurrence: None)
  Receive Date: 20050520
  Receipt Date: 20050209
  Transmission Date: 20051028
  Serious: Yes (Other)
  Sender: FDA-Public Use
  Company Number: PHNU2005DE00893

PATIENT
  Sex: Male
  Weight: 70 kg

DRUGS (4)
  1. AREDIA [Suspect]
     Indication: PLASMACYTOMA
     Dosage: 45 MG, QMO
     Route: 042
     Dates: start: 20001023, end: 20010912
  2. ZOMETA [Suspect]
     Indication: PLASMACYTOMA
     Dosage: 4 MG EVERY 6 WEEKS
     Route: 042
     Dates: start: 20011002, end: 20040830
  3. MELPHALAN [Concomitant]
     Dosage: 6 CYCLES
     Route: 065
     Dates: start: 20001023, end: 20010103
  4. PREDNISOLONE [Concomitant]
     Dosage: 6 CYCLES
     Route: 065
     Dates: start: 20001023, end: 20010103

REACTIONS (6)
  - GINGIVAL INFECTION [None]
  - IMPAIRED HEALING [None]
  - ORAL DISCOMFORT [None]
  - OSTEONECROSIS [None]
  - STOMATITIS [None]
  - TOOTH EXTRACTION [None]
